FAERS Safety Report 17907155 (Version 1)
Quarter: 2020Q2

REPORT INFORMATION
  Report Type: Spontaneous
  Country: US (occurrence: US)
  Receive Date: 20200617
  Receipt Date: 20200617
  Transmission Date: 20200714
  Serious: No
  Sender: FDA-Public Use
  Company Number: None

PATIENT
  Age: 39 Year
  Sex: Male
  Weight: 102.6 kg

DRUGS (6)
  1. LOVASTATIN. [Concomitant]
     Active Substance: LOVASTATIN
  2. PRILOSEC [Concomitant]
     Active Substance: OMEPRAZOLE MAGNESIUM
  3. METFORMIN [Concomitant]
     Active Substance: METFORMIN HYDROCHLORIDE
  4. LISINOPRIL. [Concomitant]
     Active Substance: LISINOPRIL
  5. LINEZOLID 600 MG [Suspect]
     Active Substance: LINEZOLID
     Indication: PROSTATITIS
     Dates: start: 20200611, end: 20200614
  6. BASAGLAR [Concomitant]
     Active Substance: INSULIN GLARGINE

REACTIONS (5)
  - Symptom recurrence [None]
  - Peripheral coldness [None]
  - Urinary tract pain [None]
  - Dysuria [None]
  - Therapy cessation [None]

NARRATIVE: CASE EVENT DATE: 20200614
